FAERS Safety Report 6653232-6 (Version None)
Quarter: 2010Q1

REPORT INFORMATION
  Report Type: 
  Country: None (occurrence: None)
  Receive Date: 20100326
  Receipt Date: 20100315
  Transmission Date: 20100710
  Serious: No
  Sender: FDA-Public Use
  Company Number: FI-BRISTOL-MYERS SQUIBB COMPANY-15012909

PATIENT
  Age: 15 Year
  Sex: Female

DRUGS (4)
  1. ABILIFY [Interacting]
     Indication: PSYCHOTIC DISORDER
  2. SERONIL [Interacting]
  3. QUETIAPINE [Suspect]
     Dosage: DOSE DECREASED TO 12.5MG
  4. OLANZAPINE [Concomitant]

REACTIONS (2)
  - DRUG INTERACTION [None]
  - EXTRAPYRAMIDAL DISORDER [None]
